FAERS Safety Report 13549273 (Version 2)
Quarter: 2020Q3

REPORT INFORMATION
  Report Type: Report from Study
  Country: HU (occurrence: HU)
  Receive Date: 20170516
  Receipt Date: 20170929
  Transmission Date: 20201105
  Serious: Yes (Death, Hospitalization)
  Sender: FDA-Public Use
  Company Number: HU-ASTRAZENECA-2017SE39138

PATIENT
  Age: 64 Year
  Sex: Male
  Weight: 69 kg

DRUGS (17)
  1. MEDI4736 [Suspect]
     Active Substance: DURVALUMAB
     Indication: SQUAMOUS CELL CARCINOMA OF HEAD AND NECK
     Route: 042
     Dates: start: 20170327, end: 20170327
  2. CONTROLOC [Concomitant]
     Active Substance: PANTOPRAZOLE SODIUM
     Indication: PROPHYLAXIS
     Route: 065
     Dates: start: 20170213
  3. KLAVULAN?ACID [Concomitant]
     Indication: PHARYNGITIS
     Route: 065
     Dates: start: 20170403, end: 20170409
  4. NYSTATIN. [Concomitant]
     Active Substance: NYSTATIN
     Indication: PHARYNGITIS
     Route: 065
     Dates: start: 20170403, end: 20170409
  5. AMOXICILLIN. [Concomitant]
     Active Substance: AMOXICILLIN
     Indication: PHARYNGITIS
     Route: 065
     Dates: start: 20170403, end: 20170410
  6. NAPROXEN. [Concomitant]
     Active Substance: NAPROXEN
     Indication: PHARYNGITIS
     Route: 065
     Dates: start: 20170403, end: 20170409
  7. FENTANYL. [Concomitant]
     Active Substance: FENTANYL
     Indication: CHEST PAIN
     Route: 065
     Dates: start: 20170330, end: 20170406
  8. TREMELIMUMAB. [Suspect]
     Active Substance: TREMELIMUMAB
     Indication: SQUAMOUS CELL CARCINOMA OF HEAD AND NECK
     Route: 042
     Dates: start: 20170327, end: 20170327
  9. TREMELIMUMAB. [Suspect]
     Active Substance: TREMELIMUMAB
     Indication: SQUAMOUS CELL CARCINOMA OF HEAD AND NECK
     Route: 042
     Dates: start: 20170626, end: 20170626
  10. CONTRAMAL [Concomitant]
     Active Substance: TRAMADOL HYDROCHLORIDE
     Route: 065
     Dates: start: 20170314, end: 20170330
  11. VENTER [Concomitant]
     Route: 065
     Dates: start: 20170314
  12. ETHYLMORPHINE [Concomitant]
     Active Substance: ETHYLMORPHINE
     Route: 065
     Dates: start: 20170213
  13. FENTANYL. [Concomitant]
     Active Substance: FENTANYL
     Indication: CHEST PAIN
     Route: 065
     Dates: start: 20170407
  14. MEDI4736 [Suspect]
     Active Substance: DURVALUMAB
     Indication: SQUAMOUS CELL CARCINOMA OF HEAD AND NECK
     Route: 042
     Dates: start: 20170524, end: 20170524
  15. CONCOR [Concomitant]
     Active Substance: BISOPROLOL FUMARATE
     Route: 065
     Dates: start: 20170403
  16. MEDI4736 [Suspect]
     Active Substance: DURVALUMAB
     Indication: SQUAMOUS CELL CARCINOMA OF HEAD AND NECK
     Route: 042
     Dates: start: 20170626, end: 20170626
  17. TREMELIMUMAB. [Suspect]
     Active Substance: TREMELIMUMAB
     Indication: SQUAMOUS CELL CARCINOMA OF HEAD AND NECK
     Route: 042
     Dates: start: 20170524, end: 20170524

REACTIONS (1)
  - Anaemia [Recovered/Resolved]

NARRATIVE: CASE EVENT DATE: 20170410
